FAERS Safety Report 4861738-5 (Version None)
Quarter: 2005Q4

REPORT INFORMATION
  Report Type: 
  Country: None (occurrence: None)
  Receive Date: 20051220
  Receipt Date: 20051005
  Transmission Date: 20060501
  Serious: Yes (Hospitalization, Disabling)
  Sender: FDA-Public Use
  Company Number: US-MERCK-0510USA04437

PATIENT
  Age: 52 Year
  Sex: Male
  Weight: 85 kg

DRUGS (4)
  1. VIOXX [Suspect]
     Indication: PROSTATIC PAIN
     Route: 048
     Dates: start: 20010216, end: 20010426
  2. VIOXX [Suspect]
     Route: 048
     Dates: start: 20010401, end: 20041227
  3. VIOXX [Suspect]
     Indication: LIMB INJURY
     Route: 048
     Dates: start: 20010216, end: 20010426
  4. VIOXX [Suspect]
     Route: 048
     Dates: start: 20010401, end: 20041227

REACTIONS (8)
  - ARTERIAL STENOSIS [None]
  - BENIGN PROSTATIC HYPERPLASIA [None]
  - CARDIAC DISORDER [None]
  - CARDIOVASCULAR DISORDER [None]
  - HAEMATOSPERMIA [None]
  - LIMB INJURY [None]
  - MYOCARDIAL INFARCTION [None]
  - PROSTATITIS [None]
